FAERS Safety Report 7659751-8 (Version None)
Quarter: 2011Q3

REPORT INFORMATION
  Report Type: 
  Country: None (occurrence: None)
  Receive Date: 20110805
  Receipt Date: 20110728
  Transmission Date: 20111222
  Serious: Yes (Hospitalization)
  Sender: FDA-Public Use
  Company Number: PHHY2011FR68171

PATIENT
  Sex: Female

DRUGS (11)
  1. HYDROCORTISONE [Concomitant]
     Dosage: 10 MG/DAY
  2. SYMBICORT [Concomitant]
     Dosage: 2 OT, BID (PUFF IN MORNING AND EVENING)
  3. PRIMPERAN TAB [Concomitant]
     Dosage: 10 MG, PRN
  4. VANCOMYCIN HCL [Suspect]
     Indication: ENDOCARDITIS BACTERIAL
     Dosage: 2.5 G, QD
     Route: 042
     Dates: start: 20110422, end: 20110422
  5. BRICANYL [Concomitant]
  6. ALDACTAZINE [Concomitant]
     Dosage: 1 DF, UNK
  7. PREVISCAN [Concomitant]
     Dosage: 10 MG/DAY
  8. GENTAMICIN [Suspect]
     Indication: ENDOCARDITIS BACTERIAL
     Dosage: 150 MG, QD
     Route: 042
     Dates: start: 20110421, end: 20110422
  9. POTASSIUM CHLORIDE [Concomitant]
     Dosage: 2 DF/DAY
  10. LASIX [Concomitant]
     Dosage: 20 MG, UNK
  11. AMOXICILLIN [Concomitant]
     Dosage: 2 G, 6QD
     Dates: start: 20110421

REACTIONS (6)
  - OLIGURIA [None]
  - RENAL FAILURE ACUTE [None]
  - HAEMATURIA [None]
  - RENAL TUBULAR NECROSIS [None]
  - ANURIA [None]
  - PULMONARY OEDEMA [None]
